FAERS Safety Report 15407569 (Version 1)
Quarter: 2018Q3

REPORT INFORMATION
  Report Type: Spontaneous
  Country: US (occurrence: US)
  Receive Date: 20180920
  Receipt Date: 20180920
  Transmission Date: 20181010
  Serious: No
  Sender: FDA-Public Use
  Company Number: US-AMARIN PHARMA, INC.-2018AMR000138

PATIENT
  Age: 8 Decade
  Sex: Male

DRUGS (1)
  1. VASCEPA [Suspect]
     Active Substance: ICOSAPENT ETHYL
     Indication: BLOOD TRIGLYCERIDES
     Route: 048
     Dates: start: 201711

REACTIONS (4)
  - Product size issue [Unknown]
  - Drug ineffective [Unknown]
  - Prescription drug used without a prescription [Unknown]
  - Wrong technique in product usage process [Unknown]
